FAERS Safety Report 19071466 (Version 1)
Quarter: 2021Q1

REPORT INFORMATION
  Report Type: Spontaneous
  Country: DE (occurrence: DE)
  Receive Date: 20210330
  Receipt Date: 20210330
  Transmission Date: 20210420
  Serious: Yes (Hospitalization)
  Sender: FDA-Public Use
  Company Number: DE-ALKEM LABORATORIES LIMITED-DE-ALKEM-2021-01602

PATIENT
  Sex: Female

DRUGS (5)
  1. PREGABALIN. [Suspect]
     Active Substance: PREGABALIN
     Indication: NEURALGIA
     Dosage: 150 MILLIGRAM, QD (EVERY 1 DAY)
     Route: 048
     Dates: start: 202102
  2. CORTISONE [Suspect]
     Active Substance: CORTISONE
     Indication: MULTIPLE SCLEROSIS RELAPSE
     Dosage: UNK
     Route: 065
     Dates: start: 20200711, end: 20200713
  3. TECFIDERA [Suspect]
     Active Substance: DIMETHYL FUMARATE
     Indication: MULTIPLE SCLEROSIS
     Dosage: 480 MILLIGRAM, QD (EVERY 1 DAY)
     Route: 048
     Dates: start: 20210129
  4. CORTISONE [Suspect]
     Active Substance: CORTISONE
     Dosage: UNK
     Route: 065
     Dates: start: 20210201, end: 20210203
  5. CORTISONE [Suspect]
     Active Substance: CORTISONE
     Dosage: 1 UNK, QD, (EVERY 1 DAY)
     Route: 042
     Dates: start: 20210301, end: 20210303

REACTIONS (4)
  - Dizziness [Not Recovered/Not Resolved]
  - Viral infection [Not Recovered/Not Resolved]
  - Nausea [Not Recovered/Not Resolved]
  - Vomiting [Not Recovered/Not Resolved]

NARRATIVE: CASE EVENT DATE: 2021
